FAERS Safety Report 25735507 (Version 3)
Quarter: 2025Q3

REPORT INFORMATION
  Report Type: Spontaneous
  Country: EU (occurrence: EU)
  Receive Date: 20250828
  Receipt Date: 20250912
  Transmission Date: 20251020
  Serious: Yes (Life-Threatening, Hospitalization)
  Sender: OTSUKA
  Company Number: None

PATIENT
  Age: 57 Year
  Sex: Male

DRUGS (7)
  1. ARIPIPRAZOLE [Interacting]
     Active Substance: ARIPIPRAZOLE
     Indication: Product used for unknown indication
     Route: 030
     Dates: start: 20250304, end: 20250808
  2. BREXPIPRAZOLE [Interacting]
     Active Substance: BREXPIPRAZOLE
     Indication: Product used for unknown indication
     Dosage: 1 DF, QD (1 TABLET/24 H)
     Route: 048
     Dates: start: 20250304, end: 20250808
  3. CLOZAPINE [Interacting]
     Active Substance: CLOZAPINE
     Indication: Product used for unknown indication
     Dosage: 1 DF, QD (1 TABLET/24H)
     Route: 048
     Dates: start: 20250304, end: 20250808
  4. CLONAZEPAM [Interacting]
     Active Substance: CLONAZEPAM
     Indication: Product used for unknown indication
     Dosage: 1 DF, TID (EVERY 8H)
     Route: 030
     Dates: start: 20250304, end: 20250808
  5. ZUCLOPENTHIXOL ACETATE [Interacting]
     Active Substance: ZUCLOPENTHIXOL ACETATE
     Indication: Product used for unknown indication
     Route: 030
     Dates: start: 20250302, end: 20250304
  6. LOSARTAN [Concomitant]
     Active Substance: LOSARTAN
     Indication: Product used for unknown indication
     Dosage: 1 DF, QD (1 TABLET/24H)
     Route: 048
     Dates: start: 20240112, end: 20250330
  7. FOLIC ACID [Concomitant]
     Active Substance: FOLIC ACID
     Indication: Product used for unknown indication
     Dosage: 3 DF, BID  (3 TABLETS/12H)
     Route: 048
     Dates: start: 20250304, end: 20250808

REACTIONS (1)
  - Depressed level of consciousness [Recovered/Resolved]

NARRATIVE: CASE EVENT DATE: 20250304
